FAERS Safety Report 7816973-0 (Version None)
Quarter: 2011Q4

REPORT INFORMATION
  Report Type: 
  Country: None (occurrence: None)
  Receive Date: 20111017
  Receipt Date: 20111012
  Transmission Date: 20120403
  Serious: Yes (Hospitalization)
  Sender: FDA-Public Use
  Company Number: US-BRISTOL-MYERS SQUIBB COMPANY-16154957

PATIENT
  Age: 50 Year
  Sex: Male

DRUGS (3)
  1. REYATAZ [Suspect]
     Indication: HIV INFECTION
  2. ZERIT [Suspect]
     Indication: HIV INFECTION
  3. EPIVIR [Suspect]
     Indication: HIV INFECTION

REACTIONS (2)
  - SEPSIS [None]
  - PNEUMONIA [None]
